FAERS Safety Report 11792950 (Version 1)
Quarter: 2015Q4

REPORT INFORMATION
  Report Type: Spontaneous
  Country: US (occurrence: None)
  Receive Date: 20151130
  Receipt Date: 20151130
  Transmission Date: 20160305
  Serious: Yes (Life-Threatening, Hospitalization)
  Sender: FDA-Public Use
  Company Number: 2015US-106611

PATIENT
  Age: 68 Year
  Sex: Male

DRUGS (2)
  1. CITALOPRAM (CITALOPRAM) UNKNOWN [Suspect]
     Active Substance: CITALOPRAM HYDROBROMIDE
     Indication: DEPRESSION
  2. BUPROPION. [Suspect]
     Active Substance: BUPROPION
     Indication: DEPRESSION

REACTIONS (2)
  - Delirium [None]
  - Serotonin syndrome [None]
